FAERS Safety Report 13187344 (Version 3)
Quarter: 2017Q2

REPORT INFORMATION
  Report Type: Spontaneous
  Country: US (occurrence: US)
  Receive Date: 20170206
  Receipt Date: 20170531
  Transmission Date: 20170830
  Serious: No
  Sender: FDA-Public Use
  Company Number: US-TEVA-731035ACC

PATIENT
  Age: 68 Year
  Sex: Female

DRUGS (20)
  1. COQ10 [Concomitant]
     Active Substance: UBIDECARENONE
  2. PROLIA [Concomitant]
     Active Substance: DENOSUMAB
  3. VITAMIN C [Concomitant]
     Active Substance: ASCORBIC ACID
  4. VITAMIN B-6 [Concomitant]
     Active Substance: PYRIDOXINE
  5. GABAPENTIN. [Concomitant]
     Active Substance: GABAPENTIN
  6. FAMOTIDINE. [Concomitant]
     Active Substance: FAMOTIDINE
  7. VESICARE [Concomitant]
     Active Substance: SOLIFENACIN SUCCINATE
  8. IBUPROFEN. [Concomitant]
     Active Substance: IBUPROFEN
  9. COPAXONE [Suspect]
     Active Substance: GLATIRAMER ACETATE
     Indication: MULTIPLE SCLEROSIS
     Route: 058
     Dates: start: 20110706, end: 20161215
  10. MAGNESIUM [Concomitant]
     Active Substance: MAGNESIUM
  11. ESTRADIOL. [Concomitant]
     Active Substance: ESTRADIOL
  12. CALCIUM [Concomitant]
     Active Substance: CALCIUM
  13. FISH OIL [Concomitant]
     Active Substance: FISH OIL
  14. VITAMIN B12 [Concomitant]
     Active Substance: CYANOCOBALAMIN
  15. VIVELLE-DOT [Concomitant]
     Active Substance: ESTRADIOL
  16. AMPYRA [Concomitant]
     Active Substance: DALFAMPRIDINE
  17. BONIVA [Concomitant]
     Active Substance: IBANDRONATE SODIUM
  18. VITAMIN D [Concomitant]
     Active Substance: CHOLECALCIFEROL
  19. BACLOFEN. [Concomitant]
     Active Substance: BACLOFEN
  20. LEVOTHYROXIN [Concomitant]
     Active Substance: LEVOTHYROXINE

REACTIONS (4)
  - Injection site reaction [Recovered/Resolved]
  - Wrong technique in product usage process [Unknown]
  - Injection site erythema [Recovered/Resolved]
  - Injection site swelling [Recovered/Resolved]

NARRATIVE: CASE EVENT DATE: 201611
